FAERS Safety Report 8283063-5 (Version None)
Quarter: 2012Q2

REPORT INFORMATION
  Report Type: 
  Country: None (occurrence: None)
  Receive Date: 20120413
  Receipt Date: 20120330
  Transmission Date: 20120825
  Serious: Yes (Other)
  Sender: FDA-Public Use
  Company Number: NL-AMGEN-NLDSP2012022014

PATIENT
  Age: 65 Year
  Sex: Female

DRUGS (7)
  1. TOPAMAX [Concomitant]
     Indication: CLUSTER HEADACHE
     Dosage: UNK
  2. METHOTREXATE SODIUM [Concomitant]
     Dosage: UNK
  3. OMEPRAZOLE [Concomitant]
     Dosage: UNK
  4. FOLIC ACID [Concomitant]
     Dosage: UNK
  5. ENBREL [Suspect]
     Indication: RHEUMATOID ARTHRITIS
     Dosage: 50 MG, WEEKLY
  6. VERAPAMIL [Concomitant]
     Dosage: UNK
  7. IRBESARTAN [Concomitant]
     Dosage: UNK

REACTIONS (2)
  - FALL [None]
  - LOSS OF CONSCIOUSNESS [None]
